FAERS Safety Report 4821491-8 (Version None)
Quarter: 2005Q4

REPORT INFORMATION
  Report Type: 
  Country: None (occurrence: None)
  Receive Date: 20051107
  Receipt Date: 20051102
  Transmission Date: 20060501
  Serious: Yes (Hospitalization, Disabling, Other)
  Sender: FDA-Public Use
  Company Number: US-GLAXOSMITHKLINE-A0580665A

PATIENT
  Age: 78 Year
  Sex: Female

DRUGS (7)
  1. REQUIP [Suspect]
     Indication: RESTLESS LEGS SYNDROME
     Route: 048
     Dates: start: 20050101, end: 20051101
  2. LASIX [Concomitant]
  3. POTASSIUM CHLORIDE [Concomitant]
  4. ASPIRIN [Concomitant]
  5. ALBUTEROL [Concomitant]
  6. ULTRAM [Concomitant]
  7. PREDNISONE [Concomitant]

REACTIONS (2)
  - DYSSTASIA [None]
  - PAIN [None]
